FAERS Safety Report 8344485-7 (Version None)
Quarter: 2012Q2

REPORT INFORMATION
  Report Type: 
  Country: None (occurrence: None)
  Receive Date: 20120508
  Receipt Date: 20120430
  Transmission Date: 20120825
  Serious: Yes (Other)
  Sender: FDA-Public Use
  Company Number: IT-TEVA-336552ISR

PATIENT
  Sex: Male

DRUGS (5)
  1. LASIX [Concomitant]
     Route: 042
  2. EMEND [Concomitant]
     Route: 048
  3. MAGNESIUM SULFATE [Concomitant]
  4. ZOFRAN [Concomitant]
     Route: 042
  5. CISPLATIN [Suspect]
     Indication: ADENOCARCINOMA
     Route: 042
     Dates: start: 20120101, end: 20120423

REACTIONS (9)
  - OEDEMA PERIPHERAL [None]
  - PRURITUS [None]
  - HYPERHIDROSIS [None]
  - DYSPNOEA [None]
  - PARAESTHESIA [None]
  - EYELID OEDEMA [None]
  - CONJUNCTIVAL HYPERAEMIA [None]
  - ASTHENIA [None]
  - PARAESTHESIA ORAL [None]
